FAERS Safety Report 19808631 (Version 1)
Quarter: 2021Q3

REPORT INFORMATION
  Report Type: Spontaneous
  Country: US (occurrence: US)
  Receive Date: 20210903
  Receipt Date: 20210903
  Transmission Date: 20211014
  Serious: Yes (Hospitalization)
  Sender: FDA-Public Use
  Company Number: None

PATIENT
  Age: 45 Year
  Sex: Female
  Weight: 54.4 kg

DRUGS (4)
  1. 5?FLUOROURACIL (5?FU) [Suspect]
     Active Substance: FLUOROURACIL
     Dates: end: 20210819
  2. LEUCOVORIN CALCIUM. [Suspect]
     Active Substance: LEUCOVORIN CALCIUM
     Dates: end: 20210819
  3. CAMPTOSAR [Suspect]
     Active Substance: IRINOTECAN HYDROCHLORIDE
     Dates: end: 20210819
  4. ELOXATIN [Suspect]
     Active Substance: OXALIPLATIN
     Dates: end: 20210819

REACTIONS (2)
  - Cholecystitis infective [None]
  - Cholelithiasis [None]

NARRATIVE: CASE EVENT DATE: 20210901
